FAERS Safety Report 9192422 (Version 2)
Quarter: 2013Q2

REPORT INFORMATION
  Report Type: Spontaneous
  Country: US (occurrence: US)
  Receive Date: 20130327
  Receipt Date: 20130522
  Transmission Date: 20140414
  Serious: Yes (Death)
  Sender: FDA-Public Use
  Company Number: US-ELI_LILLY_AND_COMPANY-US201303006896

PATIENT
  Age: 66 Year
  Sex: Female
  Weight: 92.06 kg

DRUGS (2)
  1. FORTEO [Suspect]
     Indication: OSTEOPOROSIS POSTMENOPAUSAL
     Dosage: 20 UG, QD
     Route: 058
     Dates: start: 201106
  2. LEVOTHYROXINE [Concomitant]
     Indication: POST PROCEDURAL HYPOTHYROIDISM

REACTIONS (1)
  - Death [Fatal]
